FAERS Safety Report 5033510-7 (Version None)
Quarter: 2006Q2

REPORT INFORMATION
  Report Type: 
  Country: None (occurrence: None)
  Receive Date: 20060623
  Receipt Date: 20060617
  Transmission Date: 20061013
  Serious: Yes (Other)
  Sender: FDA-Public Use
  Company Number: US-AVENTIS-200615298US

PATIENT
  Sex: Male

DRUGS (1)
  1. KETEK [Suspect]
     Indication: INFECTION
     Dosage: DOSE: UNK

REACTIONS (1)
  - LIVER FUNCTION TEST ABNORMAL [None]
